FAERS Safety Report 6188684-1 (Version None)
Quarter: 2009Q2

REPORT INFORMATION
  Report Type: 
  Country: None (occurrence: None)
  Receive Date: 20090513
  Receipt Date: 20090507
  Transmission Date: 20091009
  Serious: Yes (Hospitalization)
  Sender: FDA-Public Use
  Company Number: FR-JNJFOC-20090500625

PATIENT
  Age: 83 Year
  Sex: Female

DRUGS (8)
  1. REMINYL [Suspect]
  2. REMINYL [Suspect]
     Indication: DRUG USE FOR UNKNOWN INDICATION
  3. IMOVANE [Suspect]
     Indication: DRUG USE FOR UNKNOWN INDICATION
  4. LEPONEX [Suspect]
     Indication: DRUG USE FOR UNKNOWN INDICATION
  5. PERINDOPRIL ERBUMINE [Suspect]
     Indication: DRUG USE FOR UNKNOWN INDICATION
  6. MODOPAR [Suspect]
  7. MODOPAR [Suspect]
     Indication: DRUG USE FOR UNKNOWN INDICATION
  8. PARACETAMOL [Concomitant]

REACTIONS (3)
  - FALL [None]
  - ORTHOSTATIC HYPOTENSION [None]
  - OSTEOARTHRITIS [None]
